FAERS Safety Report 4840936-0 (Version None)
Quarter: 2005Q4

REPORT INFORMATION
  Report Type: 
  Country: None (occurrence: None)
  Receive Date: 20051130
  Receipt Date: 20050701
  Transmission Date: 20060501
  Serious: No
  Sender: FDA-Public Use
  Company Number: US-BRISTOL-MYERS SQUIBB COMPANY-13022520

PATIENT
  Age: 32 Year
  Sex: Male

DRUGS (4)
  1. ABILIFY [Suspect]
     Indication: SCHIZOAFFECTIVE DISORDER
     Route: 048
     Dates: start: 20040722
  2. ETHAMBUTOL [Concomitant]
  3. ISONIAZID [Concomitant]
  4. RIFAMPIN [Concomitant]

REACTIONS (1)
  - DRUG INTERACTION [None]
